FAERS Safety Report 19870588 (Version 1)
Quarter: 2021Q3

REPORT INFORMATION
  Report Type: Spontaneous
  Country: US (occurrence: US)
  Receive Date: 20210922
  Receipt Date: 20210922
  Transmission Date: 20211014
  Serious: Yes (Hospitalization)
  Sender: FDA-Public Use
  Company Number: None

PATIENT
  Age: 36 Year
  Sex: Male
  Weight: 85.1 kg

DRUGS (8)
  1. METHOTREXATE. [Suspect]
     Active Substance: METHOTREXATE
     Dates: end: 20210902
  2. ONCASPAR [Suspect]
     Active Substance: PEGASPARGASE
     Dates: end: 20210801
  3. CYTARABINE. [Suspect]
     Active Substance: CYTARABINE
     Dates: end: 20210912
  4. DAUNORUBICIN [Suspect]
     Active Substance: DAUNORUBICIN
     Dates: end: 20210812
  5. THIOGUANINE (6?TG) [Suspect]
     Active Substance: THIOGUANINE ANHYDROUS
     Dates: end: 20210915
  6. CYCLOPHOSPHAMIDE. [Suspect]
     Active Substance: CYCLOPHOSPHAMIDE
     Dates: end: 20210902
  7. DEXAMETHASONE. [Suspect]
     Active Substance: DEXAMETHASONE
     Dates: end: 20210818
  8. VINCRISTINE SULFATE. [Suspect]
     Active Substance: VINCRISTINE SULFATE
     Dates: end: 20210812

REACTIONS (10)
  - Lung opacity [None]
  - Febrile neutropenia [None]
  - Pulmonary fibrosis [None]
  - Cough [None]
  - Infestation [None]
  - Atelectasis [None]
  - Ear pain [None]
  - Infection [None]
  - Headache [None]
  - Chills [None]

NARRATIVE: CASE EVENT DATE: 20210916
